FAERS Safety Report 7066083-8 (Version None)
Quarter: 2010Q4

REPORT INFORMATION
  Report Type: 
  Country: None (occurrence: None)
  Receive Date: 20101027
  Receipt Date: 20100326
  Transmission Date: 20110411
  Serious: Yes (Hospitalization, Other)
  Sender: FDA-Public Use
  Company Number: HQWYE306728OCT05

PATIENT
  Sex: Female

DRUGS (5)
  1. PREMPRO [Suspect]
     Dosage: UNKNOWN
  2. COMBIPATCH [Suspect]
  3. ESTRACE [Suspect]
     Dosage: UNKNOWN
  4. PREMARIN [Suspect]
     Dosage: UNKNOWN
  5. PROVERA [Suspect]
     Dosage: UNKNOWN

REACTIONS (1)
  - BREAST CANCER [None]
